FAERS Safety Report 16236530 (Version 1)
Quarter: 2019Q2

REPORT INFORMATION
  Report Type: Spontaneous
  Country: FR (occurrence: FR)
  Receive Date: 20190425
  Receipt Date: 20190425
  Transmission Date: 20190711
  Serious: Yes (Hospitalization)
  Sender: FDA-Public Use
  Company Number: FR-SUN PHARMACEUTICAL INDUSTRIES LTD-2019RR-206175

PATIENT
  Age: 34 Year
  Sex: Female
  Weight: 55 kg

DRUGS (1)
  1. TRAMADOL. [Suspect]
     Active Substance: TRAMADOL
     Indication: SCIATICA
     Dosage: 37,5/325 MG
     Route: 048
     Dates: start: 20180815, end: 20180815

REACTIONS (4)
  - Depersonalisation/derealisation disorder [Recovered/Resolved]
  - Hypoaesthesia [Recovered/Resolved]
  - Feeling drunk [Recovered/Resolved]
  - Derealisation [Recovered/Resolved]

NARRATIVE: CASE EVENT DATE: 20180815
